FAERS Safety Report 22652559 (Version 1)
Quarter: 2023Q2

REPORT INFORMATION
  Report Type: Spontaneous
  Country: GB (occurrence: GB)
  Receive Date: 20230629
  Receipt Date: 20230629
  Transmission Date: 20230722
  Serious: Yes (Hospitalization, Other)
  Sender: FDA-Public Use
  Company Number: GB-MYLANLABS-2014S1006620

PATIENT
  Age: 16 Year
  Sex: Female

DRUGS (12)
  1. DOXAZOSIN [Suspect]
     Active Substance: DOXAZOSIN MESYLATE
     Indication: Product used for unknown indication
     Dosage: UNK UNK,UNK,,28 MG (0.33 MG/KG)
     Route: 065
  2. FLUCLOXACILLIN [Suspect]
     Active Substance: FLUCLOXACILLIN
     Indication: Product used for unknown indication
     Dosage: UNK UNK,UNK,,3.5 G (41 MG/KG)
     Route: 065
  3. FELODIPINE [Suspect]
     Active Substance: FELODIPINE
     Indication: Product used for unknown indication
     Dosage: UNK UNK,UNK,,280 MG (3.3 MG/KG)
     Route: 065
  4. CINNARIZINE [Suspect]
     Active Substance: CINNARIZINE
     Indication: Product used for unknown indication
     Dosage: UNK UNK,UNK,,210 MG (2.4 MG/KG)
     Route: 065
  5. BENDROFLUMETHIAZIDE [Suspect]
     Active Substance: BENDROFLUMETHIAZIDE
     Indication: Product used for unknown indication
     Dosage: UNK UNK,UNK,,70 MG (0.81 MG/KG)
     Route: 065
  6. SODIUM CHLORIDE [Suspect]
     Active Substance: SODIUM CHLORIDE
     Indication: Hypotension
     Dosage: UNK
     Route: 065
  7. ALCOHOL [Suspect]
     Active Substance: ALCOHOL
     Indication: Product used for unknown indication
     Dosage: UNK UNK,UNK,
     Route: 065
  8. GLUCAGON [Concomitant]
     Active Substance: GLUCAGON
     Indication: Hypotension
     Dosage: UNK
     Route: 065
  9. CALCIUM CHLORIDE [Concomitant]
     Active Substance: CALCIUM CHLORIDE
     Indication: Hypotension
     Dosage: UNK
     Route: 065
  10. EPINEPHRINE [Concomitant]
     Active Substance: EPINEPHRINE
     Indication: Hypotension
     Dosage: UNK
     Route: 065
  11. KETAMINE [Concomitant]
     Active Substance: KETAMINE
     Indication: Induction of anaesthesia
     Dosage: 0.8 MILLIGRAM/KILOGRAM, ONCE A DAY
     Route: 065
  12. SUCCINYLCHOLINE CHLORIDE [Concomitant]
     Active Substance: SUCCINYLCHOLINE CHLORIDE
     Indication: Induction of anaesthesia
     Dosage: 1.2 MILLIGRAM/KILOGRAM, ONCE A DAY
     Route: 065

REACTIONS (12)
  - Hypotension [Recovering/Resolving]
  - Tachycardia [Recovering/Resolving]
  - Confusional state [Recovering/Resolving]
  - Pallor [Recovering/Resolving]
  - Cold sweat [Recovering/Resolving]
  - Aggression [Recovering/Resolving]
  - Agitation [Recovering/Resolving]
  - Polyuria [Recovering/Resolving]
  - Overdose [Recovering/Resolving]
  - Toxicity to various agents [Recovering/Resolving]
  - Sinus tachycardia [Recovered/Resolved]
  - Cardiovascular insufficiency [Recovered/Resolved]
